FAERS Safety Report 13082292 (Version 1)
Quarter: 2017Q1

REPORT INFORMATION
  Report Type: Report from Study
  Country: FR (occurrence: FR)
  Receive Date: 20170103
  Receipt Date: 20170103
  Transmission Date: 20170428
  Serious: Yes (Death)
  Sender: FDA-Public Use
  Company Number: FR-PFIZER INC-2016605044

PATIENT

DRUGS (2)
  1. ETOPOSIDE. [Suspect]
     Active Substance: ETOPOSIDE
     Indication: HORMONE-REFRACTORY PROSTATE CANCER
     Dosage: 100 MG/M2, DAILY  (D1-3; EVERY 3 WEEKS FOR A MAXIMUM OF 6 CYCLES)
     Route: 042
  2. CARBOPLATIN. [Suspect]
     Active Substance: CARBOPLATIN
     Indication: HORMONE-REFRACTORY PROSTATE CANCER
     Dosage: AUC 4 D1 (EVERY 3 WEEKS FOR A MAXIMUM OF 6 CYCLES)
     Route: 042

REACTIONS (1)
  - Death [Fatal]
